FAERS Safety Report 17740824 (Version 1)
Quarter: 2020Q2

REPORT INFORMATION
  Report Type: Spontaneous
  Country: EG (occurrence: EG)
  Receive Date: 20200504
  Receipt Date: 20200504
  Transmission Date: 20200714
  Serious: Yes (Other)
  Sender: FDA-Public Use
  Company Number: EG-WEST THERAPEUTIC DEVELOPMENT-2020WTD00012

PATIENT

DRUGS (4)
  1. OXYTOCIN. [Concomitant]
     Active Substance: OXYTOCIN
     Route: 064
  2. DEXAMETHASONE. [Concomitant]
     Active Substance: DEXAMETHASONE
     Indication: MATERNAL DISTRESS DURING LABOUR
     Dosage: 4 MG
     Route: 064
  3. BUPIVACAINE. [Concomitant]
     Active Substance: BUPIVACAINE
     Indication: MATERNAL DISTRESS DURING LABOUR
     Dosage: 2.5 MG
     Route: 064
  4. FENTANYL. [Suspect]
     Active Substance: FENTANYL
     Indication: MATERNAL DISTRESS DURING LABOUR
     Dosage: 25 MCG
     Route: 064

REACTIONS (2)
  - Exposure during pregnancy [Recovered/Resolved]
  - Bradycardia foetal [Unknown]
